FAERS Safety Report 24771560 (Version 1)
Quarter: 2024Q4

REPORT INFORMATION
  Report Type: Spontaneous
  Country: US (occurrence: US)
  Receive Date: 20241224
  Receipt Date: 20241224
  Transmission Date: 20250114
  Serious: Yes (Hospitalization)
  Sender: Otter
  Company Number: US-OTTER-US-2024AST000391

PATIENT
  Age: 79 Year
  Sex: Female

DRUGS (2)
  1. METHOTREXATE [Suspect]
     Active Substance: METHOTREXATE
     Indication: Crohn^s disease
     Dosage: 2.5 MILLIGRAM, THRICE A WEEK
     Route: 065
     Dates: start: 201505
  2. METHOTREXATE [Suspect]
     Active Substance: METHOTREXATE
     Indication: Vitritis
     Dosage: 10 MILLIGRAM, THRICE A WEEK
     Route: 065
     Dates: start: 2020

REACTIONS (2)
  - Pulmonary arterial hypertension [Unknown]
  - Off label use [Unknown]

NARRATIVE: CASE EVENT DATE: 20191201
